FAERS Safety Report 24749670 (Version 1)
Quarter: 2024Q4

REPORT INFORMATION
  Report Type: Spontaneous
  Country: IE (occurrence: IE)
  Receive Date: 20241218
  Receipt Date: 20241218
  Transmission Date: 20250115
  Serious: Yes (Other)
  Sender: SANDOZ
  Company Number: None

PATIENT
  Sex: Female

DRUGS (1)
  1. ESTRADIOL [Suspect]
     Active Substance: ESTRADIOL
     Indication: Product used for unknown indication
     Dosage: 100 UG
     Route: 062

REACTIONS (5)
  - Rheumatoid arthritis [Unknown]
  - Brain fog [Unknown]
  - Hot flush [Unknown]
  - Fatigue [Unknown]
  - Irritability [Unknown]
